FAERS Safety Report 16353737 (Version 1)
Quarter: 2019Q2

REPORT INFORMATION
  Report Type: Report from Study
  Country: CA (occurrence: CA)
  Receive Date: 20190524
  Receipt Date: 20190524
  Transmission Date: 20190711
  Serious: Yes (Other)
  Sender: FDA-Public Use
  Company Number: CA-JNJFOC-20181029126

PATIENT
  Age: 61 Year
  Sex: Male
  Weight: 89.5 kg

DRUGS (4)
  1. REMICADE [Suspect]
     Active Substance: INFLIXIMAB
     Indication: CROHN^S DISEASE
     Route: 042
  2. REMICADE [Suspect]
     Active Substance: INFLIXIMAB
     Indication: CROHN^S DISEASE
     Route: 042
  3. REMICADE [Suspect]
     Active Substance: INFLIXIMAB
     Indication: CROHN^S DISEASE
     Route: 042
  4. REMICADE [Suspect]
     Active Substance: INFLIXIMAB
     Indication: CROHN^S DISEASE
     Dosage: ALSO GIVEN AS 500 MG
     Route: 042
     Dates: start: 20160713, end: 20181127

REACTIONS (9)
  - Intestinal obstruction [Unknown]
  - Abdominal hernia [Unknown]
  - Anaemia [Recovering/Resolving]
  - Arthropathy [Recovering/Resolving]
  - Intestinal stenosis [Recovering/Resolving]
  - Therapeutic product effect decreased [Unknown]
  - Crohn^s disease [Recovering/Resolving]
  - Drug level below therapeutic [Unknown]
  - Blood iron decreased [Recovering/Resolving]

NARRATIVE: CASE EVENT DATE: 201810
